FAERS Safety Report 13824231 (Version 1)
Quarter: 2017Q3

REPORT INFORMATION
  Report Type: Report from Study
  Country: IN (occurrence: IN)
  Receive Date: 20170802
  Receipt Date: 20170802
  Transmission Date: 20171127
  Serious: Yes (Death, Other)
  Sender: FDA-Public Use
  Company Number: IN-ROCHE-1968472

PATIENT

DRUGS (2)
  1. STREPTOKINASE [Suspect]
     Active Substance: STREPTOKINASE
     Indication: PULMONARY EMBOLISM
     Route: 042
  2. TENECTEPLASE [Suspect]
     Active Substance: TENECTEPLASE
     Indication: PULMONARY EMBOLISM
     Route: 042

REACTIONS (5)
  - Haemorrhage [Fatal]
  - Respiratory failure [Unknown]
  - Hypoxia [Fatal]
  - Shock [Fatal]
  - Treatment failure [Unknown]
